FAERS Safety Report 4315015-1 (Version None)
Quarter: 2004Q1

REPORT INFORMATION
  Report Type: 
  Country: None (occurrence: None)
  Receive Date: 20040309
  Receipt Date: 20040225
  Transmission Date: 20041129
  Serious: Yes (Other)
  Sender: FDA-Public Use
  Company Number: US-JNJFOC-20040206312

PATIENT
  Age: 62 Year
  Sex: Male
  Weight: 81.6475 kg

DRUGS (15)
  1. INFLIXIMAB (INFLIXIMAB, RECOMBINANT) LYOPHILIZED POWDER [Suspect]
     Indication: RHEUMATOID ARTHRITIS
     Dosage: INTRAVENOUS
     Route: 042
     Dates: start: 20010801
  2. METHOTREXATE [Concomitant]
  3. RANITIDINE [Concomitant]
  4. MULTIVITAMIN (MULTIVITAMIN) [Concomitant]
  5. TRIAMTERENE (TRIAMTERENE) [Concomitant]
  6. IBUPROFEN [Concomitant]
  7. FOSAMAX [Concomitant]
  8. GLUCOSAMINE/CHONDROITIN (GLUCOSAMINE W/CHONDROITIN SULFATES) [Concomitant]
  9. PREDNISONE [Concomitant]
  10. FOLIC ACID [Concomitant]
  11. SUCRAFATE (SUCRALFATE) [Concomitant]
  12. CYCLOBENZAPRINE HCL [Concomitant]
  13. ATENOLOL [Concomitant]
  14. FLUOXETINE [Concomitant]
  15. VITAMIN E [Concomitant]

REACTIONS (2)
  - BLOOD CHOLESTEROL INCREASED [None]
  - BLOOD TRIGLYCERIDES INCREASED [None]
